FAERS Safety Report 16139055 (Version 1)
Quarter: 2019Q2

REPORT INFORMATION
  Report Type: Spontaneous
  Country: FR (occurrence: FR)
  Receive Date: 20190401
  Receipt Date: 20190401
  Transmission Date: 20190711
  Serious: Yes (Hospitalization, Other)
  Sender: FDA-Public Use
  Company Number: FR-ACCORD-115449

PATIENT
  Age: 62 Year
  Sex: Female
  Weight: 74 kg

DRUGS (7)
  1. METHOTREXATE. [Suspect]
     Active Substance: METHOTREXATE
     Indication: PSORIASIS
     Dosage: 20 MG, WEEKLY
     Route: 058
     Dates: start: 200906
  2. FOLIC ACID. [Suspect]
     Active Substance: FOLIC ACID
     Indication: PRODUCT USED FOR UNKNOWN INDICATION
     Dosage: 5 MG, WEEKLY
     Route: 048
     Dates: start: 200909
  3. DERMOVAL [Concomitant]
     Dosage: UNK
     Dates: start: 20160111, end: 201808
  4. ATORVASTATIN [Concomitant]
     Active Substance: ATORVASTATIN
     Dosage: UNK
     Dates: start: 2014
  5. STELARA [Suspect]
     Active Substance: USTEKINUMAB
     Indication: PSORIASIS
     Dosage: 90 MG EVERY 12 WEEKS,RECEIVED SUBCUTANEOUS 45 MG EVERY 4 WEEKS(33 DAYS) FROM 08-JAN TO 09-FEB-2015
     Route: 058
     Dates: start: 20150622, end: 20181203
  6. BISOPROLOL [Concomitant]
     Active Substance: BISOPROLOL
     Dosage: UNK
     Dates: start: 201410
  7. DAIVOBET [Concomitant]
     Active Substance: BETAMETHASONE DIPROPIONATE\CALCIPOTRIENE
     Dosage: UNK

REACTIONS (3)
  - Arthropod bite [Unknown]
  - Cellulitis [Recovered/Resolved]
  - Infection [Recovered/Resolved]

NARRATIVE: CASE EVENT DATE: 20180718
